FAERS Safety Report 11033143 (Version 3)
Quarter: 2015Q2

REPORT INFORMATION
  Report Type: Spontaneous
  Country: NO (occurrence: NO)
  Receive Date: 20150415
  Receipt Date: 20150522
  Transmission Date: 20150821
  Serious: Yes (Hospitalization)
  Sender: FDA-Public Use
  Company Number: NO-UCBSA-2015011639

PATIENT
  Age: 20 Year
  Sex: Female

DRUGS (8)
  1. FAMOTIDINE. [Concomitant]
     Active Substance: FAMOTIDINE
     Indication: PRODUCT USED FOR UNKNOWN INDICATION
     Dosage: UNK
  2. INFLIXIMAB [Concomitant]
     Active Substance: INFLIXIMAB
     Indication: PRODUCT USED FOR UNKNOWN INDICATION
  3. PARACET [Concomitant]
     Active Substance: ACETAMINOPHEN
     Indication: PRODUCT USED FOR UNKNOWN INDICATION
     Dosage: UNK
  4. CIMZIA [Suspect]
     Active Substance: CERTOLIZUMAB PEGOL
     Indication: PRODUCT USED FOR UNKNOWN INDICATION
     Dosage: UNK
  5. HUMIRA [Suspect]
     Active Substance: ADALIMUMAB
     Indication: SPONDYLITIS
     Dosage: UNK
     Dates: start: 201310, end: 201407
  6. VITAMIN B12 [Concomitant]
     Active Substance: CYANOCOBALAMIN
     Indication: PRODUCT USED FOR UNKNOWN INDICATION
     Dosage: MONTHLY (QM)
  7. VIMOVO [Concomitant]
     Active Substance: ESOMEPRAZOLE MAGNESIUM\NAPROXEN
     Indication: PRODUCT USED FOR UNKNOWN INDICATION
     Dosage: UNK
     Dates: end: 2014
  8. LACTOSE [Concomitant]
     Active Substance: LACTOSE
     Indication: PRODUCT USED FOR UNKNOWN INDICATION
     Dosage: UNK
     Dates: end: 201410

REACTIONS (18)
  - Blood oestrogen decreased [Recovering/Resolving]
  - Malaise [Unknown]
  - Headache [Unknown]
  - Diarrhoea [Unknown]
  - Hypersensitivity [Unknown]
  - Gastroenteritis [Unknown]
  - Cardiovascular disorder [Unknown]
  - Gastritis [Unknown]
  - Gastrointestinal bacterial infection [Unknown]
  - Gastroenteritis viral [Unknown]
  - Crohn^s disease [Unknown]
  - Dehydration [Unknown]
  - Gastrointestinal disorder [Unknown]
  - Eye infection [Recovering/Resolving]
  - Dizziness [Unknown]
  - Joint swelling [Unknown]
  - Asthma [Unknown]
  - Large intestinal ulcer [Unknown]

NARRATIVE: CASE EVENT DATE: 2013
